FAERS Safety Report 7479057-X (Version None)
Quarter: 2011Q2

REPORT INFORMATION
  Report Type: 
  Country: None (occurrence: None)
  Receive Date: 20110511
  Receipt Date: 20110511
  Transmission Date: 20111010
  Serious: Yes (Other)
  Sender: FDA-Public Use
  Company Number: None

PATIENT
  Age: 43 Year
  Sex: Female
  Weight: 96.1626 kg

DRUGS (2)
  1. PACLITAXEL [Suspect]
     Indication: CORONARY ARTERY DISEASE
     Dosage: EFFIENT - 10MG 1 @ DAY MOUTH
     Route: 048
     Dates: start: 20110201
  2. PROMUS [Suspect]
     Dosage: PLAVIX NO LONGER TAKING
     Dates: start: 20090911, end: 20100301

REACTIONS (7)
  - DEHYDRATION [None]
  - HYPOAESTHESIA [None]
  - SKIN BURNING SENSATION [None]
  - MUSCLE SPASMS [None]
  - NIGHT SWEATS [None]
  - HYPOAESTHESIA ORAL [None]
  - DISTURBANCE IN ATTENTION [None]
